FAERS Safety Report 10584064 (Version 1)
Quarter: 2014Q4

REPORT INFORMATION
  Report Type: Spontaneous
  Country: US (occurrence: None)
  Receive Date: 20141113
  Receipt Date: 20141113
  Transmission Date: 20150529
  Serious: Yes (Death)
  Sender: FDA-Public Use
  Company Number: None

PATIENT
  Age: 61 Year
  Sex: Male

DRUGS (2)
  1. STIVARGA [Suspect]
     Active Substance: REGORAFENIB
     Indication: COLON CANCER
     Dosage: 160 MG   DAILY X 21 DAYS THEN 7  PO
     Route: 048
     Dates: start: 201409, end: 201411
  2. STIVARGA [Suspect]
     Active Substance: REGORAFENIB
     Indication: METASTASES TO LIVER
     Dosage: 160 MG   DAILY X 21 DAYS THEN 7  PO
     Route: 048
     Dates: start: 201409, end: 201411

REACTIONS (5)
  - Fluid retention [None]
  - Abdominal distension [None]
  - Pulmonary oedema [None]
  - Fatigue [None]
  - Oedema peripheral [None]

NARRATIVE: CASE EVENT DATE: 20141108
